FAERS Safety Report 14348919 (Version 3)
Quarter: 2018Q1

REPORT INFORMATION
  Report Type: Spontaneous
  Country: AR (occurrence: AR)
  Receive Date: 20180104
  Receipt Date: 20180203
  Transmission Date: 20180509
  Serious: Yes (Other)
  Sender: FDA-Public Use
  Company Number: AR-ROCHE-2048738

PATIENT
  Sex: Female

DRUGS (9)
  1. DOCETAXEL. [Concomitant]
     Active Substance: DOCETAXEL
     Indication: BREAST CANCER
  2. CAPECITABINE. [Concomitant]
     Active Substance: CAPECITABINE
  3. PERTUZUMAB. [Suspect]
     Active Substance: PERTUZUMAB
     Indication: BREAST CANCER RECURRENT
     Route: 042
  4. CYCLOPHOSPHAMIDE. [Concomitant]
     Active Substance: CYCLOPHOSPHAMIDE
     Indication: HER-2 POSITIVE BREAST CANCER
  5. HERCEPTIN [Suspect]
     Active Substance: TRASTUZUMAB
     Indication: HER-2 POSITIVE BREAST CANCER
     Route: 042
  6. CARBOPLATIN. [Concomitant]
     Active Substance: CARBOPLATIN
  7. HERCEPTIN [Suspect]
     Active Substance: TRASTUZUMAB
     Indication: HER-2 POSITIVE BREAST CANCER
     Route: 058
  8. PACLITAXEL. [Suspect]
     Active Substance: PACLITAXEL
     Indication: BREAST CANCER
     Route: 065
  9. OXALIPLATIN. [Concomitant]
     Active Substance: OXALIPLATIN

REACTIONS (3)
  - Adenocarcinoma pancreas [Unknown]
  - Intestinal adenocarcinoma [Unknown]
  - Skin toxicity [Unknown]
